FAERS Safety Report 16914926 (Version 1)
Quarter: 2019Q4

REPORT INFORMATION
  Report Type: Spontaneous
  Country: GB (occurrence: GB)
  Receive Date: 20191014
  Receipt Date: 20191014
  Transmission Date: 20200122
  Serious: Yes (Other)
  Sender: FDA-Public Use
  Company Number: GB-MYLANLABS-2019M1095354

PATIENT
  Age: 54 Year
  Sex: Female
  Weight: 44 kg

DRUGS (16)
  1. FOLIC ACID. [Concomitant]
     Active Substance: FOLIC ACID
     Dosage: 1 DOSAGE FORM, QD
     Dates: start: 20190130
  2. KETOCONAZOLE. [Concomitant]
     Active Substance: KETOCONAZOLE
     Dosage: UNK (APPLY TO THE AFFECTED AREA(S) ONCE OR TWICE A D)
     Route: 061
     Dates: start: 20190130
  3. CARBAMAZEPINE. [Suspect]
     Active Substance: CARBAMAZEPINE
     Indication: PRODUCT USED FOR UNKNOWN INDICATION
     Dosage: 100 MILLIGRAM
     Dates: start: 20190604
  4. LORATADINE. [Concomitant]
     Active Substance: LORATADINE
     Dosage: 1 DOSAGE FORM, QD
     Dates: start: 20190130
  5. FLUTICASONE PROPIONATE. [Concomitant]
     Active Substance: FLUTICASONE PROPIONATE
     Dosage: 8 DOSAGE FORM, QD (2 PUFFS IN EACH NOSTRIL)
     Route: 045
     Dates: start: 20190130
  6. SYMBICORT [Concomitant]
     Active Substance: BUDESONIDE\FORMOTEROL FUMARATE DIHYDRATE
     Dosage: 6 DOSAGE FORM, QD (3 PUFFS MORNING AND 3 PUFFS NIGHT)
     Dates: start: 20190130
  7. THIAMINE. [Concomitant]
     Active Substance: THIAMINE
     Dosage: 2 DOSAGE FORM, QD
     Dates: start: 20190130
  8. BACLOFEN. [Concomitant]
     Active Substance: BACLOFEN
     Dosage: 0.5 DOSAGE FORM, QD (AT NIGHT F...)
     Dates: start: 20190130
  9. ZOPICLONE [Concomitant]
     Active Substance: ZOPICLONE
     Dosage: 1 DOSAGE FORM, QD (AT NIGHT .)
     Dates: start: 20190130
  10. MOMETASONE [Concomitant]
     Active Substance: MOMETASONE
     Dosage: 1 DOSAGE FORM, QD
     Dates: start: 20190130
  11. VENTOLIN [Concomitant]
     Active Substance: ALBUTEROL SULFATE
     Dosage: UNK (AS DIRECTED)
     Dates: start: 20190130
  12. SILVER SULFADIAZENE [Concomitant]
     Active Substance: SILVER SULFADIAZINE
     Dosage: UNK (USE AS DIRECTED)
     Dates: start: 20190306
  13. JEXT [Concomitant]
     Dosage: UNK (USE AS DIRECTED)
     Dates: start: 20190130
  14. TAMOXIFEN [Concomitant]
     Active Substance: TAMOXIFEN
     Dosage: 0.5 DOSAGE FORM, QD (AS DIRECTED)
     Dates: start: 20190326, end: 20190423
  15. DERMOL                             /01330701/ [Concomitant]
     Dosage: UNK (APPLY TO SKIN OR USE AS SOAP SUBSTITUTE FOR DRY)
     Dates: start: 20190326, end: 20190423
  16. CALCIUM CARBONATE. [Concomitant]
     Active Substance: CALCIUM CARBONATE
     Dosage: 4 DOSAGE FORM, QD
     Dates: start: 20190501

REACTIONS (1)
  - Abdominal distension [Recovered/Resolved]

NARRATIVE: CASE EVENT DATE: 20190604
